FAERS Safety Report 5447271-0 (Version None)
Quarter: 2007Q3

REPORT INFORMATION
  Report Type: 
  Country: None (occurrence: None)
  Receive Date: 20070910
  Receipt Date: 20070830
  Transmission Date: 20080115
  Serious: Yes (Hospitalization, Other)
  Sender: FDA-Public Use
  Company Number: IT-NOVOPROD-266607

PATIENT
  Age: 36 Year
  Sex: Female
  Weight: 57.5 kg

DRUGS (2)
  1. LEVEMIR [Suspect]
     Dosage: .31 IU/KG, QD
     Route: 058
     Dates: start: 20060501, end: 20061201
  2. NOVORAPID FLEXPEN [Suspect]
     Indication: INSULIN-REQUIRING TYPE II DIABETES MELLITUS
     Dosage: .55 IU, QD
     Route: 058
     Dates: start: 20070501

REACTIONS (6)
  - CAESAREAN SECTION [None]
  - DRUG EXPOSURE DURING PREGNANCY [None]
  - OEDEMA [None]
  - PLACENTAL DISORDER [None]
  - PREGNANCY [None]
  - VASCULAR INSUFFICIENCY [None]
